APPROVED DRUG PRODUCT: ACTONEL
Active Ingredient: RISEDRONATE SODIUM
Strength: 5MG
Dosage Form/Route: TABLET;ORAL
Application: N020835 | Product #002
Applicant: ALLERGAN PHARMACEUTICALS INTERNATIONAL LTD
Approved: Apr 14, 2000 | RLD: Yes | RS: No | Type: DISCN